FAERS Safety Report 24040100 (Version 1)
Quarter: 2024Q3

REPORT INFORMATION
  Report Type: Spontaneous
  Country: FR (occurrence: FR)
  Receive Date: 20240702
  Receipt Date: 20240702
  Transmission Date: 20241017
  Serious: Yes (Hospitalization)
  Sender: ACCORD
  Company Number: None

PATIENT
  Age: 65 Year
  Sex: Male
  Weight: 71.5 kg

DRUGS (21)
  1. RAMIPRIL [Suspect]
     Active Substance: RAMIPRIL
     Indication: Hypertension
     Dates: end: 20240527
  2. ACYCLOVIR [Suspect]
     Active Substance: ACYCLOVIR
     Indication: Meningitis viral
     Dates: start: 20240526, end: 20240527
  3. AMOXICILLIN [Suspect]
     Active Substance: AMOXICILLIN
     Indication: Meningitis bacterial
     Dates: start: 20240526, end: 20240528
  4. GLIMEPIRIDE [Concomitant]
     Active Substance: GLIMEPIRIDE
  5. ACAMPROSATE CALCIUM [Concomitant]
     Active Substance: ACAMPROSATE CALCIUM
  6. TAMSULOSIN [Concomitant]
     Active Substance: TAMSULOSIN
  7. SODIUM BICARBONATE [Concomitant]
     Active Substance: SODIUM BICARBONATE
  8. DIAZEPAM [Concomitant]
     Active Substance: DIAZEPAM
  9. TRIMEPRAZINE [Concomitant]
     Active Substance: TRIMEPRAZINE
  10. LANSOPRAZOLE [Concomitant]
     Active Substance: LANSOPRAZOLE
  11. ATORVASTATIN [Concomitant]
     Active Substance: ATORVASTATIN
  12. METFORMIN [Concomitant]
     Active Substance: METFORMIN HYDROCHLORIDE
  13. THIAMINE [Concomitant]
     Active Substance: THIAMINE
  14. INSULIN NOS [Concomitant]
     Active Substance: INSULIN NOS
  15. AMLODIPINE [Concomitant]
     Active Substance: AMLODIPINE BESYLATE
  16. SITAGLIPTIN [Concomitant]
     Active Substance: SITAGLIPTIN
  17. VITAMIN B6 [Concomitant]
     Active Substance: PYRIDOXINE HYDROCHLORIDE
  18. SODIUM CHLORIDE [Concomitant]
     Active Substance: SODIUM CHLORIDE
  19. HEPARIN CALCIUM [Concomitant]
     Active Substance: HEPARIN CALCIUM
  20. ENOXAPARIN SODIUM [Concomitant]
     Active Substance: ENOXAPARIN SODIUM
  21. ASPIRIN [Concomitant]
     Active Substance: ASPIRIN

REACTIONS (2)
  - Crystalluria [Recovering/Resolving]
  - Acute kidney injury [Recovering/Resolving]

NARRATIVE: CASE EVENT DATE: 20240527
